FAERS Safety Report 13324566 (Version 1)
Quarter: 2017Q1

REPORT INFORMATION
  Report Type: Spontaneous
  Country: FR (occurrence: FR)
  Receive Date: 20170310
  Receipt Date: 20170310
  Transmission Date: 20170428
  Serious: Yes (Hospitalization)
  Sender: FDA-Public Use
  Company Number: FR-PFIZER INC-2017097916

PATIENT
  Age: 24 Year
  Sex: Female

DRUGS (3)
  1. SPASFON /00934601/ [Concomitant]
     Active Substance: PHLOROGLUCINOL
     Dosage: UNK
     Route: 048
     Dates: start: 20161211, end: 20161213
  2. POLYGINAX [Concomitant]
     Dosage: 1 DF, 1X/DAY
     Route: 067
     Dates: start: 20161211, end: 20161212
  3. CYTOTEC [Suspect]
     Active Substance: MISOPROSTOL
     Indication: DYSFUNCTIONAL UTERINE BLEEDING
     Dosage: 200 UG, 1X/DAY
     Route: 048
     Dates: start: 20161211, end: 20161213

REACTIONS (4)
  - Abdominal pain [Recovered/Resolved]
  - Product use issue [Unknown]
  - Diarrhoea [Recovered/Resolved]
  - Colitis [Recovering/Resolving]

NARRATIVE: CASE EVENT DATE: 201612
